FAERS Safety Report 8852311 (Version 2)
Quarter: 2012Q4

REPORT INFORMATION
  Report Type: 
  Country: US (occurrence: US)
  Receive Date: 20121022
  Receipt Date: 20121101
  Transmission Date: 20130627
  Serious: Yes (Other)
  Sender: FDA-Public Use
  Company Number: US-PFIZER INC-2012262458

PATIENT
  Age: 54 Year
  Sex: Female
  Weight: 70.3 kg

DRUGS (23)
  1. VISTARIL [Suspect]
     Dosage: 50 mg, daily
     Route: 048
     Dates: start: 20110518
  2. NEXIUM [Concomitant]
     Dosage: 40 mg, daily
  3. MIRALAX [Concomitant]
     Indication: LAXATIVE SUPPORTIVE CARE
     Dosage: 2 DF, daily
     Route: 048
  4. CLONIDINE [Concomitant]
     Dosage: 0.1 mg, 3x/day
  5. PROMETHAZINE [Concomitant]
     Dosage: 25 mg, 4x/day
  6. RISPERDAL [Concomitant]
     Dosage: 350 mg, 3x/day
  7. TRAMADOL [Concomitant]
     Dosage: 50 mg, 8x/day
  8. ZANAFLEX [Concomitant]
     Dosage: 10 mg, 2x/day
  9. CLONAZEPAM [Concomitant]
     Dosage: 1 mg, 3x/day
  10. GABAPENTIN [Concomitant]
     Dosage: 300 mg, 3x/day
  11. CRESTOR [Concomitant]
     Dosage: 10 mg, daily
     Route: 048
  12. ZYRTEC [Concomitant]
     Dosage: 10 mg, daily
  13. FLAXSEED OIL [Concomitant]
     Dosage: 2 tabletspoons, daily
  14. COLECALCIFEROL W/FISH OIL [Concomitant]
     Dosage: UNK,daily
  15. VITAMIN B12 [Concomitant]
     Dosage: 2000 ug, daily
  16. PECTIN [Concomitant]
     Dosage: 500 mg, daily
  17. VITAMIN B COMPLEX [Concomitant]
     Dosage: UNK,daily
  18. BILBERRY [Concomitant]
     Dosage: 1000 mg, daily
  19. VITAMIN C [Concomitant]
     Dosage: 500 mg, 2 or 3 times daily
  20. CENTRUM [Concomitant]
     Dosage: UNK,daily
  21. CALTRATE [Concomitant]
     Dosage: UNK, 2 times a day
  22. OSTEO BI-FLEX [Concomitant]
     Dosage: UNK
  23. FLEXERIL [Concomitant]
     Dosage: UNK, 3 times a day

REACTIONS (1)
  - Road traffic accident [Unknown]
